FAERS Safety Report 15291324 (Version 1)
Quarter: 2018Q3

REPORT INFORMATION
  Report Type: Spontaneous
  Country: GB (occurrence: GB)
  Receive Date: 20180817
  Receipt Date: 20180817
  Transmission Date: 20181010
  Serious: Yes (Death, Other)
  Sender: FDA-Public Use
  Company Number: GB-009507513-1808GBR003025

PATIENT
  Age: 70 Year
  Sex: Female
  Weight: 62.6 kg

DRUGS (4)
  1. TEMOZOLOMIDE. [Suspect]
     Active Substance: TEMOZOLOMIDE
     Indication: GLIOBLASTOMA
     Dosage: 320 MG, EVERY 4 WEEKS
     Route: 048
     Dates: start: 20180130, end: 20180327
  2. BEVACIZUMAB. [Concomitant]
     Active Substance: BEVACIZUMAB
     Indication: GLIOBLASTOMA
     Dosage: 600 MG, QOW
     Route: 042
     Dates: start: 20180316, end: 20180417
  3. DEPATUXIZUMAB [Suspect]
     Active Substance: DEPATUXIZUMAB
     Indication: GLIOBLASTOMA
     Dosage: 75 MG, EVERY 4 WEEKS
     Route: 042
     Dates: start: 20180219, end: 20180417
  4. GLECAPREVIR (+)  PIBRENTASVIR [Suspect]
     Active Substance: GLECAPREVIR\PIBRENTASVIR
     Indication: PRODUCT USED FOR UNKNOWN INDICATION
     Route: 048

REACTIONS (2)
  - Thrombocytopenia [Recovered/Resolved]
  - Glioblastoma [Fatal]

NARRATIVE: CASE EVENT DATE: 2018
